FAERS Safety Report 6694410-X (Version None)
Quarter: 2010Q2

REPORT INFORMATION
  Report Type: 
  Country: None (occurrence: None)
  Receive Date: 20100423
  Receipt Date: 20100419
  Transmission Date: 20101027
  Serious: Yes (Other)
  Sender: FDA-Public Use
  Company Number: US-MYLANLABS-2010S1006483

PATIENT
  Age: 22 Year
  Sex: Female

DRUGS (4)
  1. AMNESTEEM [Suspect]
     Route: 048
     Dates: start: 20091216, end: 20100114
  2. AMNESTEEM [Suspect]
     Route: 048
     Dates: start: 20100114, end: 20100301
  3. AMNESTEEM [Suspect]
     Route: 048
     Dates: start: 20100301, end: 20100414
  4. PLAN B [Concomitant]
     Indication: CONTRACEPTION
     Dates: start: 20100324, end: 20100324

REACTIONS (1)
  - DRUG EXPOSURE DURING PREGNANCY [None]
